FAERS Safety Report 7909876-4 (Version None)
Quarter: 2011Q4

REPORT INFORMATION
  Report Type: 
  Country: None (occurrence: None)
  Receive Date: 20111111
  Receipt Date: 20111101
  Transmission Date: 20120403
  Serious: Yes (Other)
  Sender: FDA-Public Use
  Company Number: US-SANOFI-AVENTIS-2011SA067625

PATIENT
  Sex: Female

DRUGS (2)
  1. SOLOSTAR [Suspect]
     Dates: start: 20100101
  2. APIDRA [Suspect]
     Dosage: ONE YEAR AGO. DOSE:20 UNIT(S)
     Route: 058
     Dates: start: 20100101

REACTIONS (5)
  - PRODUCT QUALITY ISSUE [None]
  - FOOT FRACTURE [None]
  - DEPRESSION [None]
  - BLOOD GLUCOSE INCREASED [None]
  - DRY MOUTH [None]
